FAERS Safety Report 22139433 (Version 1)
Quarter: 2023Q1

REPORT INFORMATION
  Report Type: Other
  Country: CA (occurrence: CA)
  Receive Date: 20230327
  Receipt Date: 20230327
  Transmission Date: 20230418
  Serious: Yes (Other)
  Sender: FDA-Public Use
  Company Number: CA-APOTEX-2023AP005732

PATIENT
  Age: 67 Year
  Sex: Female

DRUGS (1)
  1. LEVOFLOXACIN [Suspect]
     Active Substance: LEVOFLOXACIN
     Indication: Skin infection
     Dosage: 500 MILLIGRAM, QD
     Route: 048

REACTIONS (4)
  - Feeling hot [Recovered/Resolved]
  - Flushing [Recovered/Resolved]
  - Neck pain [Recovered/Resolved]
  - Pyrexia [Recovered/Resolved]
